FAERS Safety Report 19737752 (Version 1)
Quarter: 2021Q3

REPORT INFORMATION
  Report Type: Report from Study
  Country: FR (occurrence: FR)
  Receive Date: 20210823
  Receipt Date: 20210823
  Transmission Date: 20211014
  Serious: Yes (Hospitalization)
  Sender: FDA-Public Use
  Company Number: FR-GLAXOSMITHKLINE-FR2020GSK206500

PATIENT
  Age: 66 Year
  Sex: Female
  Weight: 57 kg

DRUGS (10)
  1. PACLITAXEL. [Suspect]
     Active Substance: PACLITAXEL
     Indication: OVARIAN CANCER
     Dosage: 264 MG
     Route: 042
     Dates: start: 20200609, end: 20200609
  2. BEVACIZUMAB. [Suspect]
     Active Substance: BEVACIZUMAB
     Dosage: 15 MG/KG
     Route: 042
     Dates: start: 20200925, end: 20200925
  3. CARBOPLATIN. [Suspect]
     Active Substance: CARBOPLATIN
     Indication: OVARIAN CANCER
     Dosage: 6 AUC
     Route: 042
     Dates: start: 20200609, end: 20200609
  4. DOCETAXEL. [Concomitant]
     Active Substance: DOCETAXEL
     Indication: OVARIAN CANCER
     Dosage: UNK
     Route: 042
  5. DOSTARLIMAB [Suspect]
     Active Substance: DOSTARLIMAB
     Indication: OVARIAN CANCER
     Dosage: 500 MG
     Dates: start: 20200703, end: 20200703
  6. DOSTARLIMAB [Suspect]
     Active Substance: DOSTARLIMAB
     Dosage: 500 MG
     Dates: start: 20200925, end: 20200925
  7. CARBOPLATIN. [Suspect]
     Active Substance: CARBOPLATIN
     Dosage: 6 AUC
     Route: 042
     Dates: start: 20200925, end: 20200925
  8. CISPLATIN. [Concomitant]
     Active Substance: CISPLATIN
     Indication: OVARIAN CANCER
     Dosage: UNK
     Route: 042
  9. PACLITAXEL. [Suspect]
     Active Substance: PACLITAXEL
     Dosage: 256 MG
     Route: 042
     Dates: start: 20200925, end: 20200925
  10. BEVACIZUMAB. [Suspect]
     Active Substance: BEVACIZUMAB
     Indication: OVARIAN CANCER
     Dosage: UNK
     Route: 042

REACTIONS (3)
  - Sepsis [Recovered/Resolved]
  - Septic shock [Recovering/Resolving]
  - Multiple organ dysfunction syndrome [Recovering/Resolving]

NARRATIVE: CASE EVENT DATE: 20201014
